FAERS Safety Report 8532848-6 (Version None)
Quarter: 2012Q3

REPORT INFORMATION
  Report Type: 
  Country: None (occurrence: None)
  Receive Date: 20120724
  Receipt Date: 20120717
  Transmission Date: 20120928
  Serious: No
  Sender: FDA-Public Use
  Company Number: US-BAYER-2012-072499

PATIENT
  Sex: Male

DRUGS (1)
  1. KOGENATE FS [Suspect]

REACTIONS (3)
  - HEADACHE [None]
  - DIZZINESS [None]
  - NAUSEA [None]
